FAERS Safety Report 5355270-2 (Version None)
Quarter: 2007Q2

REPORT INFORMATION
  Report Type: 
  Country: None (occurrence: None)
  Receive Date: 20070525
  Receipt Date: 20061011
  Transmission Date: 20071010
  Serious: Yes (Hospitalization, Other)
  Sender: FDA-Public Use
  Company Number: 2006SP003629

PATIENT
  Sex: Female

DRUGS (1)
  1. XOPENEX [Suspect]
     Indication: BRONCHITIS CHRONIC
     Dosage: ;INHALATION
     Route: 055
     Dates: start: 20060101

REACTIONS (2)
  - CONVULSION [None]
  - TREMOR [None]
